FAERS Safety Report 13359449 (Version 3)
Quarter: 2017Q1

REPORT INFORMATION
  Report Type: Spontaneous
  Country: CN (occurrence: CN)
  Receive Date: 20170322
  Receipt Date: 20170330
  Transmission Date: 20170429
  Serious: Yes (Hospitalization, Disabling, Other)
  Sender: FDA-Public Use
  Company Number: PHHY2017CN040463

PATIENT
  Age: 50 Year
  Sex: Male

DRUGS (12)
  1. METHYLPREDNISOLONE. [Concomitant]
     Active Substance: METHYLPREDNISOLONE
     Indication: PRODUCT USED FOR UNKNOWN INDICATION
     Route: 065
  2. LACTULOSE. [Concomitant]
     Active Substance: LACTULOSE
     Indication: PRODUCT USED FOR UNKNOWN INDICATION
     Route: 048
  3. TENOFOVIR DISOPROXIL FUMARATE. [Concomitant]
     Active Substance: TENOFOVIR DISOPROXIL FUMARATE
     Indication: PRODUCT USED FOR UNKNOWN INDICATION
     Route: 065
  4. SEBIVO [Suspect]
     Active Substance: TELBIVUDINE
     Indication: HEPATITIS B
     Dosage: 600 MG, QD
     Route: 048
     Dates: start: 201411, end: 20151116
  5. ENTECAVIR. [Concomitant]
     Active Substance: ENTECAVIR
     Indication: PRODUCT USED FOR UNKNOWN INDICATION
     Route: 065
  6. BARACLUDE [Concomitant]
     Active Substance: ENTECAVIR
     Indication: PRODUCT USED FOR UNKNOWN INDICATION
     Route: 065
  7. LANSOPRAZOLE. [Concomitant]
     Active Substance: LANSOPRAZOLE
     Indication: PRODUCT USED FOR UNKNOWN INDICATION
     Route: 065
  8. VITAMIN C [Concomitant]
     Active Substance: ASCORBIC ACID
     Indication: PRODUCT USED FOR UNKNOWN INDICATION
     Route: 065
  9. LEVOCARNITINE. [Concomitant]
     Active Substance: LEVOCARNITINE
     Indication: PRODUCT USED FOR UNKNOWN INDICATION
     Route: 065
  10. IRBESARTAN. [Concomitant]
     Active Substance: IRBESARTAN
     Indication: PRODUCT USED FOR UNKNOWN INDICATION
     Route: 065
  11. GLUTATHIONE [Concomitant]
     Active Substance: GLUTATHIONE
     Indication: PRODUCT USED FOR UNKNOWN INDICATION
     Route: 065
  12. TENOFOVIR [Concomitant]
     Active Substance: TENOFOVIR
     Indication: PRODUCT USED FOR UNKNOWN INDICATION
     Route: 065

REACTIONS (63)
  - Muscle necrosis [Unknown]
  - Condition aggravated [Unknown]
  - Blood lactic acid decreased [Unknown]
  - Beta 2 microglobulin increased [Unknown]
  - Liver function test abnormal [Unknown]
  - Hyperuricaemia [Unknown]
  - Blood uric acid increased [Unknown]
  - Splenomegaly [Unknown]
  - Haemoglobin decreased [Unknown]
  - Troponin increased [Unknown]
  - Blood immunoglobulin G increased [Unknown]
  - Urinary nitrogen increased [Unknown]
  - Blood creatine phosphokinase decreased [Unknown]
  - Metabolic acidosis [Unknown]
  - Lactic acidosis [Unknown]
  - Haematocrit decreased [Unknown]
  - Blood lactate dehydrogenase increased [Unknown]
  - Muscle atrophy [Unknown]
  - Rhabdomyolysis [Unknown]
  - Hypoaesthesia [Unknown]
  - Feeling abnormal [Unknown]
  - Myalgia [Unknown]
  - Blood creatine phosphokinase increased [Unknown]
  - Blood glucose increased [Unknown]
  - Blood bicarbonate [Unknown]
  - Beta 2 microglobulin urine increased [Unknown]
  - C-reactive protein increased [Unknown]
  - Staphylococcal infection [Unknown]
  - Headache [Unknown]
  - Blood pH increased [Unknown]
  - Prothrombin time prolonged [Unknown]
  - Urine calcium decreased [Unknown]
  - Blood urea increased [Unknown]
  - Protein total decreased [Unknown]
  - Cholecystitis [Unknown]
  - Hepatic cyst [Unknown]
  - Gamma-glutamyltransferase increased [Unknown]
  - Liver disorder [Unknown]
  - Hepatitis B DNA assay positive [Unknown]
  - Decreased appetite [Unknown]
  - Dyspnoea [Unknown]
  - Platelet count decreased [Unknown]
  - Blood chloride decreased [Unknown]
  - Blood albumin decreased [Unknown]
  - Fatigue [Unknown]
  - Cholestasis [Unknown]
  - Carbon dioxide decreased [Unknown]
  - Albumin urine [Unknown]
  - Myoglobin blood decreased [Unknown]
  - Blood bilirubin increased [Unknown]
  - Bilirubin conjugated increased [Unknown]
  - Chest discomfort [Recovered/Resolved]
  - Lung infection [Unknown]
  - Oedema peripheral [Recovered/Resolved]
  - Hepatic cirrhosis [Unknown]
  - Hepatic neoplasm [Unknown]
  - Jaundice [Unknown]
  - Bronchial disorder [Unknown]
  - White blood cell count increased [Unknown]
  - Neutrophil count increased [Unknown]
  - Red blood cell count decreased [Unknown]
  - Blood potassium increased [Unknown]
  - Blood creatine phosphokinase increased [Unknown]

NARRATIVE: CASE EVENT DATE: 20141110
